FAERS Safety Report 4287128-4 (Version None)
Quarter: 2004Q1

REPORT INFORMATION
  Report Type: 
  Country: None (occurrence: None)
  Receive Date: 20040204
  Receipt Date: 20040120
  Transmission Date: 20041129
  Serious: Yes (Hospitalization)
  Sender: FDA-Public Use
  Company Number: L04-CAN-00308-01

PATIENT
  Age: 74 Year
  Sex: Female

DRUGS (4)
  1. CITALOPRAM [Suspect]
     Indication: MAJOR DEPRESSION
     Dosage: 40 MG QD PO
     Route: 048
  2. TRAZODONE HCL [Suspect]
     Indication: MAJOR DEPRESSION
     Dosage: 50 MG QD PO
     Route: 048
  3. TRAZODONE HCL [Suspect]
     Indication: MAJOR DEPRESSION
     Dosage: 100MG QD
     Route: 048
  4. CLONAZEPAM [Suspect]
     Indication: MAJOR DEPRESSION
     Dosage: 4MG QD PO
     Route: 048

REACTIONS (4)
  - DYSPHAGIA [None]
  - EMOTIONAL DISTRESS [None]
  - SEROTONIN SYNDROME [None]
  - SPEECH DISORDER [None]
